FAERS Safety Report 4973693-8 (Version None)
Quarter: 2006Q2

REPORT INFORMATION
  Report Type: 
  Country: None (occurrence: None)
  Receive Date: 20060414
  Receipt Date: 20051214
  Transmission Date: 20061013
  Serious: Yes (Hospitalization)
  Sender: FDA-Public Use
  Company Number: FR-MERCK-0512FRA00051

PATIENT
  Age: 70 Year
  Sex: Male
  Weight: 75 kg

DRUGS (7)
  1. PROSCAR [Suspect]
     Indication: PROSTATE CANCER STAGE 0
     Route: 048
  2. ATORVASTATIN CALCIUM [Concomitant]
     Indication: MIXED HYPERLIPIDAEMIA
     Route: 048
     Dates: start: 20050301
  3. LERCANIDIPINE [Suspect]
     Indication: ESSENTIAL HYPERTENSION
     Route: 048
     Dates: start: 20050501, end: 20051001
  4. CLOMIPRAMINE HYDROCHLORIDE [Suspect]
     Indication: DYSTHYMIC DISORDER
     Route: 048
     Dates: end: 20051130
  5. ETHYL LOFLAZEPATE [Suspect]
     Indication: DYSTHYMIC DISORDER
     Route: 048
     Dates: end: 20051130
  6. PANTOPRAZOLE [Concomitant]
     Route: 048
  7. ALLOPURINOL [Suspect]
     Indication: HYPERURICAEMIA
     Route: 048
     Dates: end: 20051130

REACTIONS (4)
  - HAEMOLYTIC ANAEMIA [None]
  - INTENTIONAL DRUG MISUSE [None]
  - OCULAR ICTERUS [None]
  - SPLENOMEGALY [None]
